FAERS Safety Report 14258846 (Version 1)
Quarter: 2017Q4

REPORT INFORMATION
  Report Type: Report from Study
  Country: None (occurrence: US)
  Receive Date: 20171207
  Receipt Date: 20171207
  Transmission Date: 20180321
  Serious: Yes (Hospitalization)
  Sender: FDA-Public Use
  Company Number: US-VIFOR (INTERNATIONAL) INC.-VIT-2017-13035

PATIENT
  Age: 75 Year
  Sex: Female

DRUGS (9)
  1. CALCIUM ACETATE. [Concomitant]
     Active Substance: CALCIUM ACETATE
  2. GABAPENTIN. [Concomitant]
     Active Substance: GABAPENTIN
  3. MIDODRINE [Concomitant]
     Active Substance: MIDODRINE
  4. VELTASSA [Suspect]
     Active Substance: PATIROMER
     Indication: HYPERKALAEMIA
     Route: 048
     Dates: start: 20171016
  5. METOPROLOL. [Concomitant]
     Active Substance: METOPROLOL
  6. OMEPRAZOLE. [Concomitant]
     Active Substance: OMEPRAZOLE
  7. RENVELA [Concomitant]
     Active Substance: SEVELAMER CARBONATE
  8. ALLOPURINOL. [Concomitant]
     Active Substance: ALLOPURINOL
  9. ROSUVASTATIN. [Concomitant]
     Active Substance: ROSUVASTATIN

REACTIONS (2)
  - Infection [Not Recovered/Not Resolved]
  - Hypotension [Not Recovered/Not Resolved]

NARRATIVE: CASE EVENT DATE: 201711
